FAERS Safety Report 25213346 (Version 1)
Quarter: 2025Q2

REPORT INFORMATION
  Report Type: Spontaneous
  Country: US (occurrence: None)
  Receive Date: 20250417
  Receipt Date: 20250417
  Transmission Date: 20250716
  Serious: Yes (Other)
  Sender: FDA-CTU
  Company Number: None

PATIENT
  Age: 70 Year
  Sex: Male

DRUGS (11)
  1. LENALIDOMIDE [Suspect]
     Active Substance: LENALIDOMIDE
     Indication: Plasma cell myeloma
     Dosage: FREQUENCY : DAILY;?
     Route: 048
     Dates: start: 20250121
  2. ALLOPURINOL [Concomitant]
     Active Substance: ALLOPURINOL
  3. AMITRIPTYLIN TAB 10MG [Concomitant]
  4. ASPIRIN LOW TAB 81 MG EC [Concomitant]
  5. ATORVASTATIN [Concomitant]
     Active Substance: ATORVASTATIN
  6. CYANOCOBALAM INJ 1000MCG [Concomitant]
  7. FISH OIL CAP 1000MG [Concomitant]
  8. GABAPENTI N POW [Concomitant]
  9. LENALIDOMIDE CAP 2.5MG [Concomitant]
  10. LIDODERM 0185%, [Concomitant]
  11. LYRICA CAP 50MG [Concomitant]

REACTIONS (2)
  - Surgery [None]
  - Therapy interrupted [None]

NARRATIVE: CASE EVENT DATE: 20250407
